FAERS Safety Report 23912325 (Version 1)
Quarter: 2024Q2

REPORT INFORMATION
  Report Type: Spontaneous
  Country: IT (occurrence: IT)
  Receive Date: 20240528
  Receipt Date: 20240528
  Transmission Date: 20240716
  Serious: Yes (Hospitalization, Other)
  Sender: FDA-Public Use
  Company Number: IT-AstraZeneca-CH-00589379A

PATIENT
  Age: 13 Year
  Sex: Male
  Weight: 55.2 kg

DRUGS (2)
  1. ULTOMIRIS [Suspect]
     Active Substance: RAVULIZUMAB-CWVZ
     Indication: Atypical haemolytic uraemic syndrome
     Dosage: 2400 MILLIGRAM
     Route: 042
     Dates: start: 20230908
  2. ULTOMIRIS [Suspect]
     Active Substance: RAVULIZUMAB-CWVZ
     Dosage: 4000 MILLIGRAM, Q56
     Route: 042
     Dates: start: 20230921

REACTIONS (4)
  - Meningitis meningococcal [Recovered/Resolved]
  - Petechiae [Unknown]
  - Ecchymosis [Not Recovered/Not Resolved]
  - Cough [Unknown]

NARRATIVE: CASE EVENT DATE: 20240308
